FAERS Safety Report 20404557 (Version 1)
Quarter: 2022Q1

REPORT INFORMATION
  Report Type: Spontaneous
  Country: US (occurrence: US)
  Receive Date: 20220131
  Receipt Date: 20220131
  Transmission Date: 20220424
  Serious: No
  Sender: FDA-Public Use
  Company Number: US-LUPIN PHARMACEUTICALS INC.-2022-01030

PATIENT
  Age: 48 Year
  Sex: Female

DRUGS (9)
  1. BETAMETHASONE [Suspect]
     Active Substance: BETAMETHASONE
     Indication: Hypersensitivity
     Dosage: UNK
     Route: 061
  2. MYCOPHENOLATE MOFETIL [Suspect]
     Active Substance: MYCOPHENOLATE MOFETIL
     Indication: Dermatitis allergic
     Dosage: UNK
     Route: 048
  3. TACROLIMUS [Suspect]
     Active Substance: TACROLIMUS
     Indication: Dermatitis allergic
     Dosage: UNK
     Route: 061
  4. PREDNISONE [Concomitant]
     Active Substance: PREDNISONE
     Indication: Dermatitis allergic
     Dosage: UNK
     Route: 065
  5. DUPILUMAB [Concomitant]
     Active Substance: DUPILUMAB
     Indication: Dermatitis allergic
     Dosage: 300 MILLIGRAM ON EVERY 2 WEEKS
     Route: 065
  6. DUPILUMAB [Concomitant]
     Active Substance: DUPILUMAB
     Dosage: 200 MILLIGRAM EVERY 2 WEEKS
     Route: 065
  7. CALAMINE [Concomitant]
     Active Substance: CALAMINE\FERRIC OXIDE RED\ZINC OXIDE
     Indication: Dermatitis allergic
     Dosage: UNK LOTION
     Route: 061
  8. NEOSPORIN [Concomitant]
     Active Substance: BACITRACIN ZINC\NEOMYCIN SULFATE\POLYMYXIN B SULFATE
     Indication: Dermatitis allergic
     Dosage: UNK
     Route: 065
  9. MUPIROCIN [Concomitant]
     Active Substance: MUPIROCIN
     Indication: Dermatitis allergic
     Dosage: UNK
     Route: 065

REACTIONS (2)
  - Off label use [Unknown]
  - Drug ineffective for unapproved indication [Unknown]
